FAERS Safety Report 16384539 (Version 2)
Quarter: 2019Q3

REPORT INFORMATION
  Report Type: Spontaneous
  Country: US (occurrence: US)
  Receive Date: 20190603
  Receipt Date: 20190703
  Transmission Date: 20191004
  Serious: Yes (Hospitalization, Other)
  Sender: FDA-Public Use
  Company Number: US-INCYTE CORPORATION-2019IN005360

PATIENT

DRUGS (3)
  1. JAKAFI [Suspect]
     Active Substance: RUXOLITINIB
     Indication: ACUTE MYELOID LEUKAEMIA
     Dosage: 25 MILLIGRAM, BID
     Route: 048
     Dates: start: 20190531
  2. JAKAFI [Suspect]
     Active Substance: RUXOLITINIB
     Dosage: UNK
     Route: 065
     Dates: start: 201905
  3. JAKAFI [Suspect]
     Active Substance: RUXOLITINIB
     Dosage: 50 MILLIGRAM, BID
     Route: 048
     Dates: start: 201905

REACTIONS (8)
  - Dehydration [Unknown]
  - Decreased appetite [Unknown]
  - Oropharyngeal pain [Unknown]
  - Dysphagia [Unknown]
  - Off label use [Unknown]
  - Product use issue [Unknown]
  - Hyponatraemia [Recovering/Resolving]
  - Acute kidney injury [Unknown]
